FAERS Safety Report 24066472 (Version 1)
Quarter: 2024Q3

REPORT INFORMATION
  Report Type: Spontaneous
  Country: US (occurrence: None)
  Receive Date: 20240709
  Receipt Date: 20240709
  Transmission Date: 20241017
  Serious: Yes (Hospitalization)
  Sender: Public
  Company Number: None

PATIENT
  Sex: Female

DRUGS (6)
  1. OPSUMIT [Suspect]
     Active Substance: MACITENTAN
     Indication: Pulmonary arterial hypertension
     Dosage: FREQUENCY : DAILY;?
     Route: 048
     Dates: start: 201806
  2. HEPARIN l/L FLUSH SYR [Concomitant]
  3. SODIUM CHLOR [Concomitant]
  4. PUMP CADD LEGACY [Concomitant]
  5. NORMAL SALINE FLUSH [Concomitant]
  6. EPOPROSTENOL 5DV G-VELETRI [Concomitant]

REACTIONS (1)
  - Cardiac failure [None]
